FAERS Safety Report 9271260 (Version 1)
Quarter: 2013Q2

REPORT INFORMATION
  Report Type: Spontaneous
  Country: US (occurrence: US)
  Receive Date: 20130506
  Receipt Date: 20130506
  Transmission Date: 20140414
  Serious: Yes (Congenital Anomaly, Other)
  Sender: FDA-Public Use
  Company Number: US-ELI_LILLY_AND_COMPANY-US201304008031

PATIENT
  Sex: Female

DRUGS (4)
  1. PROZAC [Suspect]
     Dosage: 1 DF, UNKNOWN
     Route: 064
  2. IBUPROFEN [Concomitant]
     Dosage: 1 DF, UNKNOWN
     Route: 064
  3. VITAMIN B [Concomitant]
     Dosage: 1 DF, QD
     Route: 064
  4. FOLIC ACID [Concomitant]
     Dosage: 1 DF, QD
     Route: 064

REACTIONS (2)
  - Cleft palate [Unknown]
  - Foetal exposure during pregnancy [Unknown]
